FAERS Safety Report 9521989 (Version 1)
Quarter: 2013Q1

REPORT INFORMATION
  Report Type: Spontaneous
  Country: US (occurrence: None)
  Receive Date: 20130305
  Receipt Date: 20130305
  Transmission Date: 20140127
  Serious: Yes (Hospitalization)
  Sender: FDA-Public Use
  Company Number: 163-21880-12072709

PATIENT
  Age: 66 Year
  Sex: Female
  Weight: 85.28 kg

DRUGS (6)
  1. REVLIMID (LENALIDOMIDE) (CAPSULES) [Suspect]
     Indication: PLASMA CELL MYELOMA
     Dosage: 1 IN 21 D
     Route: 048
     Dates: start: 201206, end: 201207
  2. PERCOCET [Concomitant]
  3. ULTRACET [Concomitant]
  4. METOPROLOL [Concomitant]
  5. PRILOSEC [Concomitant]
  6. AMBIEN [Concomitant]

REACTIONS (1)
  - Deep vein thrombosis [None]
